FAERS Safety Report 8325809-3 (Version None)
Quarter: 2012Q2

REPORT INFORMATION
  Report Type: 
  Country: None (occurrence: None)
  Receive Date: 20120501
  Receipt Date: 20120419
  Transmission Date: 20120825
  Serious: No
  Sender: FDA-Public Use
  Company Number: US-BIOGENIDEC-2012BI013608

PATIENT
  Sex: Female

DRUGS (1)
  1. TYSABRI [Suspect]
     Indication: MULTIPLE SCLEROSIS
     Route: 042
     Dates: start: 20090626

REACTIONS (6)
  - ASTHENIA [None]
  - NAUSEA [None]
  - FEELING ABNORMAL [None]
  - NECK PAIN [None]
  - HEADACHE [None]
  - FATIGUE [None]
